FAERS Safety Report 8340436-X (Version None)
Quarter: 2012Q2

REPORT INFORMATION
  Report Type: 
  Country: None (occurrence: None)
  Receive Date: 20120507
  Receipt Date: 20120507
  Transmission Date: 20120825
  Serious: No
  Sender: FDA-Public Use
  Company Number: None

PATIENT
  Age: 73 Year
  Sex: Male
  Weight: 81.646 kg

DRUGS (1)
  1. LEVAQUIN [Suspect]

REACTIONS (4)
  - DEPRESSED MOOD [None]
  - DEPRESSION [None]
  - TENDON PAIN [None]
  - MYALGIA [None]
